FAERS Safety Report 25777579 (Version 4)
Quarter: 2025Q4

REPORT INFORMATION
  Report Type: Spontaneous
  Country: EU (occurrence: EU)
  Receive Date: 20250909
  Receipt Date: 20251008
  Transmission Date: 20260118
  Serious: Yes (Other)
  Sender: NOVARTIS
  Company Number: EU-002147023-NVSC2025AT139648

PATIENT
  Age: 69 Year
  Sex: Female
  Weight: 95 kg

DRUGS (5)
  1. MEKINIST [Suspect]
     Active Substance: TRAMETINIB DIMETHYL SULFOXIDE
     Indication: Ovarian cancer
     Dosage: 2 MG, QD (1-0-0)
     Route: 048
     Dates: start: 202404, end: 202505
  2. LETROZOLE [Suspect]
     Active Substance: LETROZOLE
     Indication: Ovarian cancer
     Dosage: 2.5 MG, QD (1-0-0)
     Route: 048
     Dates: start: 20250520, end: 202508
  3. EDOXABAN TOSYLATE [Concomitant]
     Active Substance: EDOXABAN TOSYLATE
     Indication: Product used for unknown indication
     Dosage: UNK, QD
     Route: 048
  4. Dominal [Concomitant]
     Indication: Product used for unknown indication
     Dosage: UNK
     Route: 048
  5. DOMINAL (PROTHIPENDYL HYDROCHLORIDE) [Concomitant]
     Active Substance: PROTHIPENDYL HYDROCHLORIDE
     Indication: Insomnia
     Dosage: 80 MG (0-0-0-1/2)
     Route: 065

REACTIONS (4)
  - Ovarian cancer [Not Recovered/Not Resolved]
  - Metastases to abdominal wall [Unknown]
  - Malignant neoplasm progression [Not Recovered/Not Resolved]
  - Off label use [Unknown]

NARRATIVE: CASE EVENT DATE: 20250801
